FAERS Safety Report 5382332-6 (Version None)
Quarter: 2007Q2

REPORT INFORMATION
  Report Type: 
  Country: None (occurrence: None)
  Receive Date: 20070629
  Receipt Date: 20070402
  Transmission Date: 20071010
  Serious: Yes (Disabling, Other)
  Sender: FDA-Public Use
  Company Number: US200704000406

PATIENT
  Sex: Male
  Weight: 136.1 kg

DRUGS (2)
  1. HUMALOG [Suspect]
     Dates: start: 19990101
  2. HUMALOG PEN [Concomitant]

REACTIONS (4)
  - ACCIDENT [None]
  - NERVE INJURY [None]
  - VERTEBRAL INJURY [None]
  - WEIGHT INCREASED [None]
